FAERS Safety Report 15857075 (Version 1)
Quarter: 2019Q1

REPORT INFORMATION
  Report Type: Report from Study
  Country: US (occurrence: US)
  Receive Date: 20190123
  Receipt Date: 20190123
  Transmission Date: 20190417
  Serious: Yes (Hospitalization, Other)
  Sender: FDA-Public Use
  Company Number: US-BIOGEN-2019BI00684160

PATIENT
  Age: 62 Year
  Sex: Male

DRUGS (4)
  1. TYSABRI [Suspect]
     Active Substance: NATALIZUMAB
     Indication: MULTIPLE SCLEROSIS
     Route: 065
     Dates: start: 20171012
  2. ASPIRIN. [Concomitant]
     Active Substance: ASPIRIN
     Indication: PRODUCT USED FOR UNKNOWN INDICATION
     Route: 065
  3. LOVENOX [Concomitant]
     Active Substance: ENOXAPARIN SODIUM
     Indication: ANTICOAGULANT THERAPY
     Route: 065
  4. LIPITOR [Concomitant]
     Active Substance: ATORVASTATIN CALCIUM
     Indication: BLOOD PRESSURE MEASUREMENT
     Route: 065

REACTIONS (25)
  - Joint range of motion decreased [Unknown]
  - Relapsing-remitting multiple sclerosis [Unknown]
  - Pulmonary congestion [Unknown]
  - Epistaxis [Unknown]
  - Pain [Unknown]
  - Weight increased [Unknown]
  - Multiple sclerosis relapse [Unknown]
  - Pollakiuria [Unknown]
  - Haemoptysis [Unknown]
  - Abnormal dreams [Unknown]
  - Joint swelling [Unknown]
  - Pneumothorax [Unknown]
  - Mobility decreased [Unknown]
  - Nasopharyngitis [Unknown]
  - Influenza [Unknown]
  - Dysphonia [Unknown]
  - Arteriospasm coronary [Recovered/Resolved]
  - Arthralgia [Unknown]
  - Productive cough [Unknown]
  - Urinary incontinence [Unknown]
  - Nausea [Unknown]
  - Coagulopathy [Unknown]
  - Hypersomnia [Unknown]
  - Lower respiratory tract infection [Unknown]
  - Fear [Unknown]

NARRATIVE: CASE EVENT DATE: 20181004
